FAERS Safety Report 12404342 (Version 3)
Quarter: 2016Q2

REPORT INFORMATION
  Report Type: Report from Study
  Country: US (occurrence: US)
  Receive Date: 20160525
  Receipt Date: 20160616
  Transmission Date: 20160815
  Serious: Yes (Death, Life-Threatening, Hospitalization, Other)
  Sender: FDA-Public Use
  Company Number: US-GILEAD-2016-0215515

PATIENT
  Age: 82 Year
  Sex: Female
  Weight: 56.69 kg

DRUGS (2)
  1. AMBRISENTAN [Suspect]
     Active Substance: AMBRISENTAN
     Indication: PRODUCT USED FOR UNKNOWN INDICATION
     Dosage: 5 MG, QD
     Route: 065
  2. ADCIRCA [Concomitant]
     Active Substance: TADALAFIL

REACTIONS (8)
  - Aspiration [Unknown]
  - Pneumonia [Unknown]
  - Cardiomegaly [Unknown]
  - Respiratory failure [Fatal]
  - Pulmonary arterial hypertension [Unknown]
  - Septic shock [Unknown]
  - Urinary tract infection enterococcal [Unknown]
  - Hypotension [Unknown]
